FAERS Safety Report 24308763 (Version 1)
Quarter: 2024Q3

REPORT INFORMATION
  Report Type: Spontaneous
  Country: CN (occurrence: CN)
  Receive Date: 20240911
  Receipt Date: 20240911
  Transmission Date: 20241016
  Serious: Yes (Other)
  Sender: NOVARTIS
  Company Number: CN-002147023-NVSC2024CN182009

PATIENT
  Age: 82 Year
  Sex: Female
  Weight: 49 kg

DRUGS (4)
  1. CARBAMAZEPINE [Suspect]
     Active Substance: CARBAMAZEPINE
     Indication: Neuralgia
     Dosage: 0.2 G, BID
     Route: 048
     Dates: start: 20240902, end: 20240904
  2. PREGABALIN [Concomitant]
     Active Substance: PREGABALIN
     Indication: Neuralgia
     Dosage: 75 MG, BID
     Route: 048
     Dates: start: 20240830, end: 20240905
  3. METHYLCOBALAMIN [Concomitant]
     Active Substance: METHYLCOBALAMIN
     Indication: Symptomatic treatment
     Dosage: 0.5 MG, TID
     Route: 048
     Dates: start: 20240830, end: 20240905
  4. SALCATONIN [Concomitant]
     Active Substance: CALCITONIN SALMON
     Indication: Osteoporosis
     Dosage: 50 IU, QD
     Route: 030
     Dates: start: 20240830, end: 20240905

REACTIONS (11)
  - Myasthenic syndrome [Recovering/Resolving]
  - Asthenia [Unknown]
  - PO2 decreased [Unknown]
  - Blood glucose increased [Unknown]
  - Blood sodium decreased [Unknown]
  - Blood calcium decreased [Unknown]
  - Fibrin D dimer increased [Unknown]
  - Productive cough [Unknown]
  - Dysarthria [Unknown]
  - Decreased appetite [Unknown]
  - Muscular weakness [Unknown]

NARRATIVE: CASE EVENT DATE: 20240903
